FAERS Safety Report 7016647-2 (Version None)
Quarter: 2010Q3

REPORT INFORMATION
  Report Type: 
  Country: None (occurrence: None)
  Receive Date: 20100927
  Receipt Date: 20100920
  Transmission Date: 20110219
  Serious: Yes (Hospitalization, Other)
  Sender: FDA-Public Use
  Company Number: AU-WYE-G06695210

PATIENT
  Age: 60 Year
  Sex: Male

DRUGS (3)
  1. PRISTIQ [Suspect]
     Indication: DEPRESSION
     Dosage: INCREASED TO 200MG OVER A PERIOD OF TIME
  2. NICOTINE [Concomitant]
  3. ETHANOL [Suspect]

REACTIONS (7)
  - ANKLE FRACTURE [None]
  - DRUG WITHDRAWAL SYNDROME [None]
  - FALL [None]
  - HEAD INJURY [None]
  - HEADACHE [None]
  - INSOMNIA [None]
  - ROAD TRAFFIC ACCIDENT [None]
